FAERS Safety Report 14977941 (Version 3)
Quarter: 2018Q2

REPORT INFORMATION
  Report Type: Spontaneous
  Country: US (occurrence: US)
  Receive Date: 20180606
  Receipt Date: 20180614
  Transmission Date: 20180711
  Serious: Yes (Other)
  Sender: FDA-Public Use
  Company Number: US-PFIZER INC-2018228945

PATIENT
  Age: 49 Year
  Sex: Female

DRUGS (17)
  1. ADVIL [Suspect]
     Active Substance: IBUPROFEN
     Indication: PAIN
     Dosage: 200MG TABLETS BY MOUTH 6 PER DAY
     Route: 048
     Dates: start: 201805
  2. METHOTREXATE. [Concomitant]
     Active Substance: METHOTREXATE
     Indication: PSORIATIC ARTHROPATHY
     Dosage: 12.5 MG, WEEKLY (2.5 MG TABLETS BY MOUTH, 5 TABLETS 1 TIME WEEKLY)
  3. VICTOZA [Concomitant]
     Active Substance: LIRAGLUTIDE
     Indication: DIABETES MELLITUS
     Dosage: 1.8 IU, 1X/DAY (1.8 UNITS AUTOINJECTION SQ ONCE PER DAY)
     Route: 058
  4. ZOLPIDEM [Concomitant]
     Active Substance: ZOLPIDEM\ZOLPIDEM TARTRATE
     Indication: SLEEP DISORDER
     Dosage: 10 MG, 1X/DAY (10 MG TABLET BY MOUTH 1 TIME DAILY AT NIGHT)
     Route: 048
  5. OTEZLA [Concomitant]
     Active Substance: APREMILAST
     Indication: PSORIASIS
  6. INDOMETHACIN SR [Concomitant]
     Indication: ARTHRALGIA
     Dosage: 75 MG, 2X/DAY
     Route: 048
  7. FOLIC ACID. [Concomitant]
     Active Substance: FOLIC ACID
     Dosage: 3 MG, DAILY (1 MG TABLET BY MOUTH, 3 TABLETS DAILY)
     Route: 048
  8. OXYCODONE IR [Concomitant]
     Active Substance: OXYCODONE
     Indication: PAIN
     Dosage: 30 MG, 4X/DAY
     Route: 048
  9. METHOTREXATE. [Concomitant]
     Active Substance: METHOTREXATE
     Indication: INFLAMMATION
  10. OTEZLA [Concomitant]
     Active Substance: APREMILAST
     Indication: PSORIATIC ARTHROPATHY
     Dosage: 30 MG, 2X/DAY
     Route: 048
  11. LISINOZIDE [Concomitant]
     Indication: HYPERTENSION
     Dosage: [HYDROCHLOROTHIAZIDE 12.5 MG]/[LISINOPRIL 10 MG], 1 TIME DAILY
     Route: 048
  12. INDOMETHACIN SR [Concomitant]
     Indication: INFLAMMATION
  13. CHLORZOXAZONE. [Concomitant]
     Active Substance: CHLORZOXAZONE
     Indication: MUSCLE SPASMS
     Dosage: 750 MG, 4X/DAY (500 MG, 1.5 TABLETS BY MOUTH 4 TIMES DAILY)
     Route: 048
  14. DULOXETINE. [Concomitant]
     Active Substance: DULOXETINE
     Indication: NEURALGIA
     Dosage: 60 MG, 1X/DAY
     Route: 048
  15. LYRICA [Concomitant]
     Active Substance: PREGABALIN
     Indication: PAIN MANAGEMENT
     Dosage: 150 MG, 2X/DAY
     Route: 048
  16. ZYRTEC [Concomitant]
     Active Substance: CETIRIZINE HYDROCHLORIDE
     Indication: HYPERSENSITIVITY
     Dosage: 10 MG, 1X/DAY
     Route: 048
  17. HYDROXYZINE [Concomitant]
     Active Substance: HYDROXYZINE HYDROCHLORIDE
     Indication: PRURITUS
     Dosage: 25 MG, 3X/DAY
     Route: 048

REACTIONS (2)
  - Blood glucose increased [Not Recovered/Not Resolved]
  - Glycosylated haemoglobin decreased [Unknown]

NARRATIVE: CASE EVENT DATE: 20180529
